FAERS Safety Report 7810181-5 (Version None)
Quarter: 2011Q4

REPORT INFORMATION
  Report Type: 
  Country: None (occurrence: None)
  Receive Date: 20111012
  Receipt Date: 20111010
  Transmission Date: 20120403
  Serious: Yes (Other)
  Sender: FDA-Public Use
  Company Number: US-SHIONOGI, INC-2011000031

PATIENT

DRUGS (2)
  1. SULAR [Suspect]
     Dosage: 40 MG, QD
     Route: 048
  2. SULAR [Suspect]
     Indication: HYPERTENSION
     Dosage: 34 MG, QD
     Route: 048
     Dates: end: 20110314

REACTIONS (3)
  - HEART RATE DECREASED [None]
  - HEART RATE INCREASED [None]
  - OEDEMA PERIPHERAL [None]
